FAERS Safety Report 21321116 (Version 2)
Quarter: 2022Q3

REPORT INFORMATION
  Report Type: Spontaneous
  Country: JP (occurrence: JP)
  Receive Date: 20220912
  Receipt Date: 20220921
  Transmission Date: 20221026
  Serious: Yes (Hospitalization)
  Sender: FDA-Public Use
  Company Number: JP-MTPC-MTPC2022-0023770

PATIENT
  Age: 55 Year
  Sex: Male

DRUGS (4)
  1. CANAGLIFLOZIN [Suspect]
     Active Substance: CANAGLIFLOZIN
     Indication: Diabetes mellitus inadequate control
     Dosage: 100 MILLIGRAM
     Route: 048
  2. ALOGLIPTIN BENZOATE [Concomitant]
     Active Substance: ALOGLIPTIN BENZOATE
     Indication: Diabetes mellitus inadequate control
     Dosage: 25 MILLIGRAM
     Route: 048
  3. PIOGLITAZONE HYDROCHLORIDE [Concomitant]
     Active Substance: PIOGLITAZONE HYDROCHLORIDE
     Indication: Diabetes mellitus inadequate control
     Dosage: 30 MILLIGRAM
     Route: 048
  4. REPAGLINIDE [Concomitant]
     Active Substance: REPAGLINIDE
     Indication: Diabetes mellitus inadequate control
     Dosage: 1.5 MILLIGRAM
     Route: 048

REACTIONS (2)
  - Thyroiditis subacute [Recovered/Resolved]
  - Euglycaemic diabetic ketoacidosis [Recovered/Resolved]
